FAERS Safety Report 11200336 (Version 1)
Quarter: 2015Q2

REPORT INFORMATION
  Report Type: Spontaneous
  Country: US (occurrence: US)
  Receive Date: 20150618
  Receipt Date: 20150618
  Transmission Date: 20150821
  Serious: No
  Sender: FDA-Public Use
  Company Number: US-TAKEDA-2015TUS005276

PATIENT
  Age: 35 Year
  Sex: Male

DRUGS (1)
  1. ULORIC [Suspect]
     Active Substance: FEBUXOSTAT
     Indication: GOUT
     Dosage: HALF TABLET, 1/WEEK
     Route: 048

REACTIONS (2)
  - Drug prescribing error [Unknown]
  - No adverse event [Unknown]
